FAERS Safety Report 9901492 (Version 2)
Quarter: 2014Q1

REPORT INFORMATION
  Report Type: Spontaneous
  Country: US (occurrence: US)
  Receive Date: 20140217
  Receipt Date: 20140217
  Transmission Date: 20141002
  Serious: No
  Sender: FDA-Public Use
  Company Number: US-GILEAD-2011-0041423

PATIENT
  Age: 49 Year
  Sex: Male

DRUGS (3)
  1. LETAIRIS [Suspect]
     Indication: PULMONARY HYPERTENSION
     Route: 048
     Dates: start: 20110625
  2. LETAIRIS [Suspect]
     Indication: MIXED CONNECTIVE TISSUE DISEASE
  3. VELETRI [Concomitant]

REACTIONS (8)
  - Pain in jaw [Unknown]
  - Myalgia [Unknown]
  - Arthralgia [Unknown]
  - Sleep disorder [Unknown]
  - Dizziness [Unknown]
  - Headache [Unknown]
  - Flushing [Unknown]
  - Constipation [Unknown]
